FAERS Safety Report 4301261-X (Version None)
Quarter: 2004Q1

REPORT INFORMATION
  Report Type: 
  Country: None (occurrence: None)
  Receive Date: 20040219
  Receipt Date: 20040211
  Transmission Date: 20041129
  Serious: Yes (Hospitalization)
  Sender: FDA-Public Use
  Company Number: 2004PK00327

PATIENT
  Age: 80 Year
  Sex: Male
  Weight: 93 kg

DRUGS (4)
  1. BELOC MITE [Suspect]
     Indication: HYPERTENSION
     Dosage: 23.75 MG QD PO
     Route: 048
  2. TRAMAL - SLOW RELEASE [Suspect]
     Indication: PAIN
     Dosage: 150 MG BID PO
     Route: 048
     Dates: start: 20030801, end: 20031202
  3. ALNA [Concomitant]
  4. PANTOZOL [Concomitant]

REACTIONS (4)
  - BLOOD ALKALINE PHOSPHATASE INCREASED [None]
  - DRUG INTERACTION [None]
  - GAMMA-GLUTAMYLTRANSFERASE INCREASED [None]
  - HEPATIC ENZYME INCREASED [None]
